FAERS Safety Report 9686968 (Version 1)
Quarter: 2013Q4

REPORT INFORMATION
  Report Type: Spontaneous
  Country: US (occurrence: US)
  Receive Date: 20131113
  Receipt Date: 20131113
  Transmission Date: 20140711
  Serious: Yes (Other)
  Sender: FDA-Public Use
  Company Number: US-PFIZER INC-2013323392

PATIENT
  Age: 71 Year
  Sex: Female
  Weight: 72.1 kg

DRUGS (3)
  1. NORVASC [Suspect]
     Indication: HYPERTENSION
     Dosage: 10 MG, 1X/DAY
     Route: 048
  2. ALPRAZOLAM [Concomitant]
     Indication: ANXIETY
     Dosage: UNK
  3. ALPRAZOLAM [Concomitant]
     Indication: PANIC ATTACK

REACTIONS (1)
  - Neoplasm malignant [Unknown]
